FAERS Safety Report 5213528-1 (Version None)
Quarter: 2007Q1

REPORT INFORMATION
  Report Type: 
  Country: None (occurrence: None)
  Receive Date: 20070119
  Receipt Date: 20070109
  Transmission Date: 20070707
  Serious: Yes (Hospitalization, Other)
  Sender: FDA-Public Use
  Company Number: PHEH2006US14693

PATIENT
  Age: 65 Year
  Sex: Male

DRUGS (9)
  1. GLEEVEC [Suspect]
     Indication: CHRONIC MYELOID LEUKAEMIA
     Dosage: 600 MG, QD
     Route: 048
     Dates: start: 20000101
  2. ATIVAN [Concomitant]
     Route: 048
  3. ASPIRIN [Concomitant]
     Dosage: 81 MG, QD
     Route: 048
  4. QUININE [Concomitant]
     Route: 048
  5. MAXZIDE [Concomitant]
     Route: 048
  6. CRESTOR [Concomitant]
     Dosage: 10 MG, UNK
     Route: 048
     Dates: end: 20061031
  7. LOTENSIN [Concomitant]
     Dosage: 10 MG, UNK
     Route: 048
     Dates: start: 20060906
  8. LISINOPRIL [Concomitant]
     Route: 048
     Dates: end: 20061031
  9. VITAMIN CAP [Concomitant]
     Route: 048

REACTIONS (11)
  - ASTHENIA [None]
  - BUNDLE BRANCH BLOCK LEFT [None]
  - CARDIOMYOPATHY [None]
  - CATHETERISATION CARDIAC [None]
  - CHEST DISCOMFORT [None]
  - DIARRHOEA [None]
  - DYSPNOEA [None]
  - ECHOCARDIOGRAM ABNORMAL [None]
  - EJECTION FRACTION DECREASED [None]
  - MYOCARDIAL ISCHAEMIA [None]
  - RENAL IMPAIRMENT [None]
